FAERS Safety Report 4965294-2 (Version None)
Quarter: 2006Q1

REPORT INFORMATION
  Report Type: 
  Country: None (occurrence: None)
  Receive Date: 20060201
  Receipt Date: 20051209
  Transmission Date: 20060701
  Serious: No
  Sender: FDA-Public Use
  Company Number: 2005PV005685

PATIENT
  Age: 61 Year
  Sex: Male

DRUGS (4)
  1. BYETTA [Suspect]
     Dosage: 5 MCG;BID;SC; 5 MCG;QD;SC; 5 MCG;BID;SC
     Route: 058
     Dates: start: 20050101, end: 20050101
  2. BYETTA [Suspect]
     Dosage: 5 MCG;BID;SC; 5 MCG;QD;SC; 5 MCG;BID;SC
     Route: 058
     Dates: start: 20051104, end: 20050101
  3. BYETTA [Suspect]
     Dosage: 5 MCG;BID;SC; 5 MCG;QD;SC; 5 MCG;BID;SC
     Route: 058
     Dates: start: 20051202
  4. GLYBURIDE AND METFORMIN HCL [Concomitant]

REACTIONS (3)
  - DIZZINESS [None]
  - HYPERSOMNIA [None]
  - NAUSEA [None]
